FAERS Safety Report 4971300-1 (Version None)
Quarter: 2006Q2

REPORT INFORMATION
  Report Type: 
  Country: None (occurrence: None)
  Receive Date: 20060413
  Receipt Date: 20050906
  Transmission Date: 20061013
  Serious: Yes (Hospitalization)
  Sender: FDA-Public Use
  Company Number: HQWYE309208SEP05

PATIENT
  Sex: Male

DRUGS (35)
  1. ENBREL [Suspect]
     Indication: RHEUMATOID ARTHRITIS
     Route: 058
     Dates: start: 20050713, end: 20051222
  2. ENBREL [Suspect]
     Route: 058
     Dates: start: 20051006, end: 20051016
  3. ENBREL [Suspect]
     Route: 058
     Dates: start: 20051020, end: 20051031
  4. ENBREL [Suspect]
     Route: 058
     Dates: start: 20051202, end: 20051222
  5. BUCILLAMINE [Suspect]
     Indication: RHEUMATOID ARTHRITIS
     Dosage: DOSE AND FREQUENCY NOT SPECIFIED
     Route: 048
     Dates: start: 20041130, end: 20050905
  6. ALENDRONATE SODIUM [Suspect]
     Indication: OSTEOPOROSIS
     Dosage: DOSE AND FREQUENCY NOT SPECIFIED
     Route: 048
     Dates: start: 20041101, end: 20050905
  7. LANSOPRAZOLE [Suspect]
     Route: 048
     Dates: end: 20050907
  8. SODIUM ALGINATE [Suspect]
     Dates: start: 20050201, end: 20050905
  9. ETODOLAC [Suspect]
     Dates: start: 20050225, end: 20050905
  10. VOGLIBOSE [Suspect]
     Dates: start: 20050324, end: 20050905
  11. SULFAMETHOXAZOLE + TRIMETHOPRIM [Suspect]
     Indication: DRUG USE FOR UNKNOWN INDICATION
     Dosage: DOSE AND FREQUENCY NOT SPECIFIED
     Dates: end: 20050901
  12. ISONIAZID [Suspect]
     Indication: ANTIBIOTIC PROPHYLAXIS
     Dosage: DOSE AND FREQUENCY NOT SPECIFIED
     Dates: start: 20041201, end: 20050901
  13. SUCRALFATE [Suspect]
     Dosage: DOSE AND FREQUENCY NOT SPECIFIED
     Dates: end: 20050905
  14. RABEPRAZOLE SODIUM [Suspect]
     Dates: start: 20050907
  15. FERROUS CITRATE [Suspect]
     Dates: end: 20050901
  16. PREDONINE [Concomitant]
     Dates: start: 20030501
  17. PREDONINE [Concomitant]
     Dates: start: 20040223
  18. INDOMETHACIN [Concomitant]
  19. DICLOFENAC SODIUM [Concomitant]
  20. CROTAMITON [Concomitant]
  21. CALCIPOTRIENE [Concomitant]
  22. HYDROXYZINE HYDROCHLORIDE [Concomitant]
  23. GENTAMICIN SULFATE [Concomitant]
  24. MELOXICAM [Concomitant]
  25. AZELASTINE [Concomitant]
  26. DIPHENHYDRAMINE [Concomitant]
  27. REBAMIPIDE [Concomitant]
  28. OLOPATADINE [Concomitant]
  29. DEXCHLORPHENIRAMINE MALEATE [Concomitant]
  30. LOXOPROFEN SODIUM [Concomitant]
  31. TACALCITOL [Concomitant]
  32. NIFENAZONE [Concomitant]
  33. DIFLUPREDNATE [Concomitant]
  34. ACUATIM [Concomitant]
     Route: 065
  35. HOMOCHLORCYCLIZINE [Concomitant]

REACTIONS (3)
  - DRUG ERUPTION [None]
  - ERYTHEMA MULTIFORME [None]
  - FALSE POSITIVE LABORATORY RESULT [None]
